FAERS Safety Report 18668754 (Version 1)
Quarter: 2020Q4

REPORT INFORMATION
  Report Type: Spontaneous
  Country: US (occurrence: US)
  Receive Date: 20201226
  Receipt Date: 20201226
  Transmission Date: 20210114
  Serious: Yes (Other)
  Sender: FDA-Public Use
  Company Number: None

PATIENT
  Age: 61 Year
  Sex: Female
  Weight: 58.5 kg

DRUGS (5)
  1. TRAMADOL. [Concomitant]
     Active Substance: TRAMADOL
  2. AMPHETA SALT TRIAM/HCTZ [Concomitant]
  3. XELJANZ XR [Suspect]
     Active Substance: TOFACITINIB CITRATE
     Indication: AUTOIMMUNE DISORDER
     Route: 048
     Dates: start: 20191130, end: 20201221
  4. ACETAMINOPHEN. [Concomitant]
     Active Substance: ACETAMINOPHEN
  5. IBUPROFEN. [Concomitant]
     Active Substance: IBUPROFEN

REACTIONS (10)
  - Normocytic anaemia [None]
  - Bone marrow oedema [None]
  - Bacterial abdominal infection [None]
  - Red blood cell abnormality [None]
  - Mobile caecum syndrome [None]
  - Nephropathy [None]
  - Intestinal malrotation [None]
  - Bone pain [None]
  - Diverticulitis [None]
  - Pelvic cyst [None]

NARRATIVE: CASE EVENT DATE: 20201217
